FAERS Safety Report 25376348 (Version 1)
Quarter: 2025Q2

REPORT INFORMATION
  Report Type: Spontaneous
  Country: CN (occurrence: CN)
  Receive Date: 20250529
  Receipt Date: 20250529
  Transmission Date: 20250717
  Serious: Yes (Other)
  Sender: BEIGENE
  Company Number: CN-BEIGENE-BGN-2025-008371

PATIENT
  Age: 59 Year

DRUGS (18)
  1. TISLELIZUMAB [Suspect]
     Active Substance: TISLELIZUMAB
     Indication: Gastric cancer
     Dosage: 200 MILLIGRAM, Q3WK D1
  2. TISLELIZUMAB [Suspect]
     Active Substance: TISLELIZUMAB
     Dosage: 200 MILLIGRAM, Q3WK D1
  3. TISLELIZUMAB [Suspect]
     Active Substance: TISLELIZUMAB
     Dosage: 200 MILLIGRAM, Q3WK D1
     Route: 041
  4. TISLELIZUMAB [Suspect]
     Active Substance: TISLELIZUMAB
     Dosage: 200 MILLIGRAM, Q3WK D1
     Route: 041
  5. TISLELIZUMAB [Suspect]
     Active Substance: TISLELIZUMAB
     Dosage: 200 MILLIGRAM, Q3WK D1
  6. TISLELIZUMAB [Suspect]
     Active Substance: TISLELIZUMAB
     Dosage: 200 MILLIGRAM, Q3WK D1
  7. TISLELIZUMAB [Suspect]
     Active Substance: TISLELIZUMAB
     Dosage: 200 MILLIGRAM, Q3WK D1
     Route: 041
  8. TISLELIZUMAB [Suspect]
     Active Substance: TISLELIZUMAB
     Dosage: 200 MILLIGRAM, Q3WK D1
     Route: 041
  9. CAPECITABINE [Suspect]
     Active Substance: CAPECITABINE
     Indication: Gastric cancer
  10. CAPECITABINE [Suspect]
     Active Substance: CAPECITABINE
     Route: 048
  11. CAPECITABINE [Suspect]
     Active Substance: CAPECITABINE
     Dosage: 3 GRAM D1-D14
  12. CAPECITABINE [Suspect]
     Active Substance: CAPECITABINE
     Dosage: 3 GRAM D1-D14
     Route: 048
  13. OXALIPLATIN [Suspect]
     Active Substance: OXALIPLATIN
     Indication: Gastric cancer
  14. OXALIPLATIN [Suspect]
     Active Substance: OXALIPLATIN
     Route: 041
  15. OXALIPLATIN [Suspect]
     Active Substance: OXALIPLATIN
  16. OXALIPLATIN [Suspect]
     Active Substance: OXALIPLATIN
     Route: 041
  17. DEXTROSE [Suspect]
     Active Substance: DEXTROSE MONOHYDRATE
     Indication: Vehicle solution use
     Route: 041
  18. DEXTROSE [Suspect]
     Active Substance: DEXTROSE MONOHYDRATE

REACTIONS (2)
  - Myelosuppression [Recovering/Resolving]
  - Decreased appetite [Recovering/Resolving]
